FAERS Safety Report 20846477 (Version 3)
Quarter: 2022Q2

REPORT INFORMATION
  Report Type: Report from Study
  Country: US (occurrence: US)
  Receive Date: 20220518
  Receipt Date: 20220526
  Transmission Date: 20220721
  Serious: Yes (Other)
  Sender: FDA-Public Use
  Company Number: US-ABBVIE-22K-163-4398202-00

PATIENT
  Sex: Female
  Weight: 94.886 kg

DRUGS (12)
  1. SYNTHROID [Suspect]
     Active Substance: LEVOTHYROXINE SODIUM
     Indication: Hypothyroidism
     Route: 048
     Dates: start: 2002
  2. SYNTHROID [Suspect]
     Active Substance: LEVOTHYROXINE SODIUM
     Route: 048
  3. SAVELLA [Suspect]
     Active Substance: MILNACIPRAN HYDROCHLORIDE
     Indication: Fibromyalgia
     Route: 048
     Dates: start: 2021
  4. LYRICA [Concomitant]
     Active Substance: PREGABALIN
     Indication: Fibromyalgia
  5. SINGULAIR [Concomitant]
     Active Substance: MONTELUKAST SODIUM
     Indication: Asthma
  6. ADVAIR HFA [Concomitant]
     Active Substance: FLUTICASONE PROPIONATE\SALMETEROL XINAFOATE
     Indication: Asthma
     Dosage: 1 PUFF
  7. TRAZODONE [Concomitant]
     Active Substance: TRAZODONE HYDROCHLORIDE
     Indication: Sleep apnoea syndrome
     Dates: start: 2005
  8. CLONAZEPAM [Concomitant]
     Active Substance: CLONAZEPAM
     Indication: Sleep apnoea syndrome
  9. HYDROCODONE [Concomitant]
     Active Substance: HYDROCODONE
     Indication: Back injury
  10. MODERNA COVID-19 VACCINE [Concomitant]
     Active Substance: ELASOMERAN
     Indication: COVID-19 immunisation
     Dosage: 1ST DOSE
     Route: 030
     Dates: start: 2021, end: 2021
  11. MODERNA COVID-19 VACCINE [Concomitant]
     Active Substance: ELASOMERAN
     Dosage: SECOND DOSE
     Route: 030
     Dates: start: 2021, end: 2021
  12. MODERNA COVID-19 VACCINE [Concomitant]
     Active Substance: ELASOMERAN
     Dosage: BOOSTER DOSE
     Route: 030
     Dates: start: 202202, end: 202202

REACTIONS (18)
  - Eyelid ptosis [Recovering/Resolving]
  - Eyelid ptosis [Recovered/Resolved]
  - Apnoea [Recovered/Resolved]
  - Dislocation of vertebra [Recovered/Resolved]
  - Skin laceration [Recovered/Resolved]
  - Swelling of eyelid [Not Recovered/Not Resolved]
  - Fall [Recovered/Resolved]
  - Contusion [Not Recovered/Not Resolved]
  - Musculoskeletal disorder [Not Recovered/Not Resolved]
  - Hormone level abnormal [Recovered/Resolved]
  - Skull fracture [Recovered/Resolved]
  - Reading disorder [Recovered/Resolved]
  - Scar [Not Recovered/Not Resolved]
  - Fall [Recovered/Resolved]
  - Nerve injury [Recovering/Resolving]
  - Altered visual depth perception [Not Recovered/Not Resolved]
  - Skin haemorrhage [Recovered/Resolved]
  - Thrombosis [Recovered/Resolved]

NARRATIVE: CASE EVENT DATE: 20160101
